FAERS Safety Report 7576058-8 (Version None)
Quarter: 2011Q2

REPORT INFORMATION
  Report Type: 
  Country: None (occurrence: None)
  Receive Date: 20110628
  Receipt Date: 20110125
  Transmission Date: 20111010
  Serious: Yes (Hospitalization, Other)
  Sender: FDA-Public Use
  Company Number: US-BAYER-201039804NA

PATIENT
  Age: 44 Year
  Sex: Female
  Weight: 56.689 kg

DRUGS (9)
  1. ADVAIR DISKUS 100/50 [Concomitant]
     Indication: ASTHMA
     Dosage: 1 PUFF(S), BID
     Route: 048
  2. YAZ [Suspect]
     Indication: DYSMENORRHOEA
  3. SINGULAIR [Concomitant]
     Indication: ASTHMA
     Dosage: 5 MG, QD
     Route: 048
  4. ALBUTEROL SULFATE AUTOHALER [Concomitant]
     Indication: HERPES VIRUS INFECTION
     Dosage: UNK
     Route: 055
     Dates: start: 20010101, end: 20080101
  5. PREDNISONE [Concomitant]
  6. XOPENEX [Concomitant]
     Indication: ASTHMA
     Dosage: UNK UNK, PRN
  7. VALTREX [Concomitant]
     Indication: ASTHMA
     Dosage: UNK
     Dates: start: 20010101, end: 20080101
  8. YAZ [Suspect]
     Indication: MENSTRUAL CYCLE MANAGEMENT
     Dosage: UNK UNK, UNK
     Route: 048
     Dates: start: 20080401, end: 20080928
  9. XANAX [Concomitant]
     Indication: ANXIETY
     Dosage: 1 MG, PRN
     Route: 048

REACTIONS (4)
  - PULMONARY EMBOLISM [None]
  - PAIN [None]
  - HEPARIN-INDUCED THROMBOCYTOPENIA [None]
  - RESPIRATORY DISTRESS [None]
